FAERS Safety Report 7592465-1 (Version None)
Quarter: 2011Q3

REPORT INFORMATION
  Report Type: 
  Country: None (occurrence: None)
  Receive Date: 20110706
  Receipt Date: 20110617
  Transmission Date: 20111222
  Serious: No
  Sender: FDA-Public Use
  Company Number: US-B.I. PHARMACEUTICALS,INC./RIDGEFIELD-2011-BP-15801BP

PATIENT
  Sex: Male

DRUGS (5)
  1. AMOXICILLIN [Concomitant]
     Indication: TOOTHACHE
     Route: 048
     Dates: start: 20110610
  2. FLOMAX [Suspect]
     Indication: BENIGN PROSTATIC HYPERPLASIA
     Dosage: 0.8 MG
     Route: 048
     Dates: start: 20030101
  3. COZAAR [Concomitant]
     Indication: HYPERTENSION
     Dosage: 100 MG
     Route: 048
  4. SIMVASTATIN [Concomitant]
     Indication: BLOOD CHOLESTEROL INCREASED
     Dosage: 20 MG
     Route: 048
  5. LYRICA [Concomitant]
     Indication: NEURALGIA
     Dosage: 600 MG
     Route: 048

REACTIONS (1)
  - URINARY RETENTION [None]
